FAERS Safety Report 7210344-6 (Version None)
Quarter: 2010Q4

REPORT INFORMATION
  Report Type: 
  Country: None (occurrence: None)
  Receive Date: 20101221
  Receipt Date: 20101209
  Transmission Date: 20110411
  Serious: Yes (Hospitalization)
  Sender: FDA-Public Use
  Company Number: 2010027097

PATIENT
  Sex: Female
  Weight: 117.028 kg

DRUGS (3)
  1. PRIVIGEN [Suspect]
     Indication: HYPOGAMMAGLOBULINAEMIA
     Dosage: (10 G 1X/MONTH INTRAVENOUS)
     Route: 042
     Dates: start: 20101101
  2. PRIVIGEN [Suspect]
     Indication: IMMUNODEFICIENCY
     Dosage: (10 G 1X/MONTH INTRAVENOUS)
     Route: 042
     Dates: start: 20101101
  3. PRIVIGEN [Suspect]

REACTIONS (8)
  - BACTERIAL INFECTION [None]
  - BLOOD CULTURE POSITIVE [None]
  - CHEST DISCOMFORT [None]
  - CHILLS [None]
  - INFUSION RELATED REACTION [None]
  - NAUSEA [None]
  - PYREXIA [None]
  - VOMITING [None]
